FAERS Safety Report 13181594 (Version 1)
Quarter: 2017Q1

REPORT INFORMATION
  Report Type: Spontaneous
  Country: HR (occurrence: HR)
  Receive Date: 20170202
  Receipt Date: 20170202
  Transmission Date: 20170428
  Serious: Yes (Other)
  Sender: FDA-Public Use
  Company Number: HR-AMGEN-HRVSP2017013556

PATIENT
  Age: 61 Year
  Sex: Female

DRUGS (4)
  1. CALCIUM [Concomitant]
     Active Substance: CALCIUM
  2. PROLIA [Suspect]
     Active Substance: DENOSUMAB
     Indication: PRODUCT USED FOR UNKNOWN INDICATION
     Dosage: UNK
     Route: 065
  3. VITAMIN D [Concomitant]
     Active Substance: CHOLECALCIFEROL
  4. LETIZEN [Concomitant]
     Indication: HYPERSENSITIVITY

REACTIONS (3)
  - Toothache [Not Recovered/Not Resolved]
  - Tooth disorder [Unknown]
  - Abscess jaw [Unknown]
